FAERS Safety Report 6219970-4 (Version None)
Quarter: 2009Q2

REPORT INFORMATION
  Report Type: 
  Country: None (occurrence: None)
  Receive Date: 20090605
  Receipt Date: 20090520
  Transmission Date: 20091009
  Serious: Yes (Death, Hospitalization)
  Sender: FDA-Public Use
  Company Number: A-CH2009-23446

PATIENT
  Age: 75 Year
  Sex: Male

DRUGS (1)
  1. TRACLEER [Suspect]
     Indication: PULMONARY HYPERTENSION
     Dosage: UNK UNK ORAL
     Route: 048

REACTIONS (3)
  - OFF LABEL USE [None]
  - PNEUMONIA KLEBSIELLA [None]
  - RESPIRATORY FAILURE [None]
